FAERS Safety Report 8774687 (Version 2)
Quarter: 2012Q4

REPORT INFORMATION
  Report Type: 
  Country: US (occurrence: US)
  Receive Date: 20120910
  Receipt Date: 20121109
  Transmission Date: 20130627
  Serious: Yes (Hospitalization)
  Sender: FDA-Public Use
  Company Number: US-SANOFI-AVENTIS-2012SA064608

PATIENT
  Age: 68 Year
  Sex: Female
  Weight: 97 kg

DRUGS (3)
  1. LANTUS SOLOSTAR [Suspect]
     Indication: TYPE 2 DIABETES MELLITUS
     Dosage: Dose:26 unit(s)
     Route: 058
     Dates: start: 2009
  2. SOLOSTAR [Suspect]
     Indication: TYPE 2 DIABETES MELLITUS
     Dates: start: 2009
  3. METFORMIN [Concomitant]

REACTIONS (1)
  - Breast cancer [Recovered/Resolved]
